FAERS Safety Report 20478985 (Version 1)
Quarter: 2022Q1

REPORT INFORMATION
  Report Type: Spontaneous
  Country: US (occurrence: US)
  Receive Date: 20220216
  Receipt Date: 20220216
  Transmission Date: 20220423
  Serious: No
  Sender: FDA-Public Use
  Company Number: US-NOVARTISTESTPH-NVSC2022US035367

PATIENT
  Age: 65 Year
  Sex: Male

DRUGS (1)
  1. LOSARTAN POTASSIUM [Suspect]
     Active Substance: LOSARTAN POTASSIUM
     Indication: Product used for unknown indication
     Dosage: UNK
     Route: 048
     Dates: start: 202107, end: 202201

REACTIONS (2)
  - Dyspnoea [Recovered/Resolved]
  - Ejection fraction [Not Recovered/Not Resolved]

NARRATIVE: CASE EVENT DATE: 20210701
